FAERS Safety Report 6170606-0 (Version None)
Quarter: 2009Q2

REPORT INFORMATION
  Report Type: 
  Country: None (occurrence: None)
  Receive Date: 20090428
  Receipt Date: 20090416
  Transmission Date: 20091009
  Serious: Yes (Hospitalization)
  Sender: FDA-Public Use
  Company Number: JP-B.I. PHARMACEUTICALS,INC./RIDGEFIELD-2009-BP-04365NB

PATIENT
  Sex: Male

DRUGS (2)
  1. BI-SIFROL TABLETS [Suspect]
     Indication: PARKINSON'S DISEASE
     Dosage: .25MG
     Route: 048
     Dates: start: 20090227, end: 20090312
  2. AMLODIPINE BESYLATE [Concomitant]
     Indication: HYPERTENSION
     Dosage: 2.5MG
     Route: 048
     Dates: start: 20090227, end: 20090312

REACTIONS (4)
  - CHEST CRUSHING [None]
  - CLAVICLE FRACTURE [None]
  - DISSOCIATIVE AMNESIA [None]
  - ROAD TRAFFIC ACCIDENT [None]
